FAERS Safety Report 8189481-8 (Version None)
Quarter: 2012Q1

REPORT INFORMATION
  Report Type: 
  Country: None (occurrence: None)
  Receive Date: 20120307
  Receipt Date: 20120302
  Transmission Date: 20120608
  Serious: Yes (Hospitalization, Other)
  Sender: FDA-Public Use
  Company Number: US-PFIZER INC-2012058055

PATIENT
  Sex: Female

DRUGS (2)
  1. CHANTIX [Suspect]
     Dosage: UNK
     Dates: start: 20081101
  2. CHANTIX [Suspect]
     Dosage: UNK
     Dates: start: 20090301

REACTIONS (1)
  - SUICIDE ATTEMPT [None]
